FAERS Safety Report 14868928 (Version 4)
Quarter: 2018Q3

REPORT INFORMATION
  Report Type: Report from Study
  Country: CA (occurrence: CA)
  Receive Date: 20180509
  Receipt Date: 20180824
  Transmission Date: 20181010
  Serious: Yes (Life-Threatening, Other)
  Sender: FDA-Public Use
  Company Number: CA-AMGEN-CANSL2018060271

PATIENT
  Age: 75 Year
  Sex: Female
  Weight: 89 kg

DRUGS (11)
  1. PROLIA [Suspect]
     Active Substance: DENOSUMAB
     Dosage: 60 MG, (LESS THAN 6 MONTHS)
     Route: 058
  2. CICLESONIDE [Concomitant]
     Active Substance: CICLESONIDE
     Dosage: UNK
  3. LORAZEPAM. [Concomitant]
     Active Substance: LORAZEPAM
     Dosage: UNK
  4. VITAMIN D [Concomitant]
     Active Substance: CHOLECALCIFEROL
     Dosage: 4000 IU, QD
  5. PROLIA [Suspect]
     Active Substance: DENOSUMAB
     Indication: OSTEOPOROSIS POSTMENOPAUSAL
     Dosage: 60 MG/ML, (7?8 MONTHS)
     Route: 058
     Dates: start: 2013
  6. VITAMIN B12 [Concomitant]
     Active Substance: CYANOCOBALAMIN
     Dosage: UNK
  7. GLUTATHIONE [Concomitant]
     Active Substance: GLUTATHIONE
     Dosage: UNK
  8. SYMBICORT [Concomitant]
     Active Substance: BUDESONIDE\FORMOTEROL FUMARATE DIHYDRATE
     Dosage: UNK, BID
  9. CETIRIZINE [Concomitant]
     Active Substance: CETIRIZINE HYDROCHLORIDE
     Dosage: UNK
  10. PREGABALIN. [Concomitant]
     Active Substance: PREGABALIN
     Dosage: UNK
  11. FLORASTOR [Concomitant]
     Active Substance: SACCHAROMYCES CEREVISIAE
     Indication: ABDOMINAL DISCOMFORT
     Dosage: UNK

REACTIONS (4)
  - Breast cancer [Recovering/Resolving]
  - Osteonecrosis of jaw [Unknown]
  - Inappropriate schedule of drug administration [Unknown]
  - Nerve injury [Unknown]

NARRATIVE: CASE EVENT DATE: 20180126
